FAERS Safety Report 10711725 (Version 1)
Quarter: 2015Q1

REPORT INFORMATION
  Report Type: Spontaneous
  Country: US (occurrence: US)
  Receive Date: 20150114
  Receipt Date: 20150114
  Transmission Date: 20150721
  Serious: No
  Sender: FDA-Public Use
  Company Number: US-009507513-1501USA004233

PATIENT
  Age: 72 Year
  Sex: Female

DRUGS (1)
  1. SINEMET [Suspect]
     Active Substance: CARBIDOPA\LEVODOPA
     Indication: WHITE MATTER LESION
     Dosage: 25/100 MG TWICE DAILY
     Route: 048

REACTIONS (1)
  - Nausea [Unknown]
